FAERS Safety Report 6568702-9 (Version None)
Quarter: 2010Q1

REPORT INFORMATION
  Report Type: 
  Country: None (occurrence: None)
  Receive Date: 20100203
  Receipt Date: 20100127
  Transmission Date: 20100710
  Serious: Yes (Death, Hospitalization, Other)
  Sender: FDA-Public Use
  Company Number: PHHY2010PL03615

PATIENT
  Sex: Female
  Weight: 50 kg

DRUGS (4)
  1. EXELON [Suspect]
     Indication: DEMENTIA ALZHEIMER'S TYPE
     Dosage: 4.6 MG, QD
     Route: 062
     Dates: start: 20091201
  2. EXELON [Suspect]
     Dosage: 9.5 MG, QD
     Route: 062
     Dates: start: 20091210, end: 20100121
  3. MADOPAR HBS [Concomitant]
     Dosage: UNK
     Route: 048
     Dates: start: 20100110, end: 20100121
  4. SODIUM CHLORIDE [Concomitant]
     Dosage: UNK
     Route: 042
     Dates: start: 20100121, end: 20100123

REACTIONS (9)
  - DEATH [None]
  - DEHYDRATION [None]
  - EXTRAPYRAMIDAL DISORDER [None]
  - GENERAL PHYSICAL HEALTH DETERIORATION [None]
  - HYPERTONIA [None]
  - ILLOGICAL THINKING [None]
  - MINI MENTAL STATUS EXAMINATION ABNORMAL [None]
  - MOTOR DYSFUNCTION [None]
  - MUSCULOSKELETAL STIFFNESS [None]
